FAERS Safety Report 13611220 (Version 1)
Quarter: 2017Q2

REPORT INFORMATION
  Report Type: Spontaneous
  Country: US (occurrence: US)
  Receive Date: 20170604
  Receipt Date: 20170604
  Transmission Date: 20170830
  Serious: Yes (Other)
  Sender: FDA-Public Use
  Company Number: None

PATIENT
  Age: 58 Year
  Sex: Male
  Weight: 65.7 kg

DRUGS (1)
  1. RUGBY ARTIFICIAL TEARS (MINERAL OIL\PETROLATUM) [Suspect]
     Active Substance: MINERAL OIL\PETROLATUM
     Indication: DRY EYE
     Route: 047
     Dates: start: 20170601, end: 20170603

REACTIONS (3)
  - Lacrimation increased [None]
  - Instillation site erythema [None]
  - Instillation site irritation [None]

NARRATIVE: CASE EVENT DATE: 20170603
